FAERS Safety Report 8529230-4 (Version None)
Quarter: 2012Q3

REPORT INFORMATION
  Report Type: 
  Country: None (occurrence: None)
  Receive Date: 20120723
  Receipt Date: 20120709
  Transmission Date: 20120928
  Serious: Yes (Death)
  Sender: FDA-Public Use
  Company Number: CA-RANBAXY-2012US-57871

PATIENT
  Age: 56 Year
  Sex: Male

DRUGS (1)
  1. MORPHINE SULFATE [Suspect]
     Indication: ARTHRALGIA
     Dosage: UNKNOWN
     Route: 065

REACTIONS (3)
  - OVERDOSE [None]
  - UNRESPONSIVE TO STIMULI [None]
  - BRAIN DEATH [None]
